FAERS Safety Report 9290717 (Version 2)
Quarter: 2013Q4

REPORT INFORMATION
  Report Type: Spontaneous
  Country: US (occurrence: US)
  Receive Date: 20130515
  Receipt Date: 20131018
  Transmission Date: 20140711
  Serious: Yes (Hospitalization)
  Sender: FDA-Public Use
  Company Number: US-B.I. PHARMACEUTICALS,INC./RIDGEFIELD-2013-BI-13286BP

PATIENT
  Sex: Female
  Weight: 124.74 kg

DRUGS (15)
  1. PRADAXA [Suspect]
     Indication: ATRIAL FIBRILLATION
     Dosage: 150 MG
     Dates: start: 20110301, end: 20110520
  2. MULTAQ [Concomitant]
     Dosage: 800 MG
  3. SIMVASTATIN [Concomitant]
     Dosage: 40 MG
  4. ASPIRIN [Concomitant]
     Dosage: 81 MG
  5. DILANTIN [Concomitant]
     Dosage: 100 MG
  6. CALTRATE D [Concomitant]
  7. SYNTHROID [Concomitant]
     Dosage: 175 MCG
  8. COZAAR [Concomitant]
     Dosage: 25 MG
  9. SINGULAIR [Concomitant]
     Dosage: 10 MG
  10. RENAGEL [Concomitant]
  11. LEVEMIR INSULIN [Concomitant]
     Indication: DIABETES MELLITUS
     Dosage: 50 U
  12. NOVOLOG [Concomitant]
     Indication: DIABETES MELLITUS
  13. OMEPRAZOLE [Concomitant]
     Dosage: 20 MG
  14. ADVAIR [Concomitant]
     Dosage: 1 PUF
  15. MULTIVITAMIN WITH ZINC AND D [Concomitant]

REACTIONS (3)
  - Small intestinal haemorrhage [Unknown]
  - Anaemia [Unknown]
  - Coagulopathy [Unknown]
